FAERS Safety Report 9641956 (Version 4)
Quarter: 2013Q4

REPORT INFORMATION
  Report Type: Spontaneous
  Country: GB (occurrence: GB)
  Receive Date: 20131023
  Receipt Date: 20131203
  Transmission Date: 20140711
  Serious: Yes (Other)
  Sender: FDA-Public Use
  Company Number: GB-PFIZER INC-2013107877

PATIENT
  Age: 27 Year
  Sex: Female
  Weight: 72 kg

DRUGS (3)
  1. ATORVASTATIN [Suspect]
     Indication: HYPERCHOLESTEROLAEMIA
     Dosage: 40 MG, 1X/DAY
     Dates: start: 201204, end: 20130331
  2. VENLAFAXINE HCL [Suspect]
     Indication: BORDERLINE PERSONALITY DISORDER
     Dosage: 300 MG, 1X/DAY
     Dates: start: 2009, end: 20131021
  3. VENLAFAXINE HCL [Suspect]
     Indication: DEPRESSION
     Dosage: 275 MG, 1X/DAY
     Dates: start: 20131022

REACTIONS (1)
  - Abortion spontaneous [Unknown]
